FAERS Safety Report 8662912 (Version 3)
Quarter: 2013Q1

REPORT INFORMATION
  Report Type: Report from Study
  Country: JP (occurrence: JP)
  Receive Date: 20120712
  Receipt Date: 20130220
  Transmission Date: 20140127
  Serious: Yes (Death, Hospitalization)
  Sender: FDA-Public Use
  Company Number: JP-ROCHE-1072174

PATIENT
  Age: 55 Year
  Sex: Female

DRUGS (3)
  1. TOCILIZUMAB [Suspect]
     Indication: RHEUMATOID ARTHRITIS
     Route: 041
     Dates: start: 20011027, end: 200806
  2. TOCILIZUMAB [Suspect]
     Route: 041
     Dates: start: 20080704, end: 20091127
  3. TOCILIZUMAB [Suspect]
     Route: 041
     Dates: start: 20100723, end: 20110121

REACTIONS (4)
  - Hepatic cancer metastatic [Fatal]
  - Breast cancer [Fatal]
  - Hepatic failure [Fatal]
  - Bile duct cancer [Unknown]
